FAERS Safety Report 8902164 (Version 2)
Quarter: 2013Q1

REPORT INFORMATION
  Report Type: Spontaneous
  Country: AU (occurrence: AU)
  Receive Date: 20121112
  Receipt Date: 20130108
  Transmission Date: 20140127
  Serious: Yes (Other)
  Sender: FDA-Public Use
  Company Number: AU-ROCHE-1154373

PATIENT
  Age: 3 Month
  Sex: Male
  Weight: 5 kg

DRUGS (1)
  1. RITUXIMAB [Suspect]
     Indication: IDIOPATHIC THROMBOCYTOPENIC PURPURA
     Route: 042
     Dates: start: 201104, end: 201105

REACTIONS (2)
  - Lymphopenia [Recovered/Resolved]
  - Hypogammaglobulinaemia [Recovering/Resolving]
